FAERS Safety Report 9332405 (Version 1)
Quarter: 2013Q2

REPORT INFORMATION
  Report Type: Spontaneous
  Country: US (occurrence: US)
  Receive Date: 20130606
  Receipt Date: 20130606
  Transmission Date: 20140414
  Serious: Yes (Other)
  Sender: FDA-Public Use
  Company Number: US-AMGEN-USASP2013039574

PATIENT
  Age: 11 Year
  Sex: Female

DRUGS (3)
  1. NEUPOGEN [Suspect]
     Indication: INFANTILE GENETIC AGRANULOCYTOSIS
     Dosage: 234 MUG, TWICE DAILY
     Route: 065
  2. NASONEX [Concomitant]
     Dosage: UNK
  3. PATANASE [Concomitant]
     Dosage: UNK

REACTIONS (5)
  - Fracture [Unknown]
  - Urine uric acid increased [Unknown]
  - Crystal urine present [Unknown]
  - Osteopenia [Unknown]
  - Hypersensitivity [Unknown]
